FAERS Safety Report 6570064-8 (Version None)
Quarter: 2010Q1

REPORT INFORMATION
  Report Type: 
  Country: None (occurrence: None)
  Receive Date: 20100204
  Receipt Date: 20100201
  Transmission Date: 20100710
  Serious: Yes (Hospitalization)
  Sender: FDA-Public Use
  Company Number: FR-ROCHE-682986

PATIENT
  Sex: Male

DRUGS (6)
  1. ROCEPHIN [Suspect]
     Indication: UROSEPSIS
     Route: 042
     Dates: start: 20091107, end: 20091111
  2. GENTAMICINE [Suspect]
     Indication: UROSEPSIS
     Dosage: DRUF: GENTAMICINE PANPHARMA, FORM: INJECTION
     Route: 042
     Dates: start: 20091107
  3. GENTAMICINE [Suspect]
     Route: 042
     Dates: start: 20091121
  4. GENTAMICINE [Suspect]
     Dosage: FORTUITOUS RE-INJECTIONS.
     Route: 042
     Dates: start: 20091124
  5. CORDARONE [Suspect]
     Indication: ATRIAL FIBRILLATION
     Dosage: DOSE: 2 AMPULES.
     Route: 042
     Dates: start: 20091107
  6. CORDARONE [Suspect]
     Route: 048
     Dates: start: 20091108, end: 20091114

REACTIONS (2)
  - DERMATITIS EXFOLIATIVE [None]
  - EOSINOPHILIA [None]
